FAERS Safety Report 5488318-5 (Version None)
Quarter: 2007Q4

REPORT INFORMATION
  Report Type: 
  Country: None (occurrence: None)
  Receive Date: 20071005
  Receipt Date: 20070814
  Transmission Date: 20080405
  Serious: No
  Sender: FDA-Public Use
  Company Number: PHEH2007US11210

PATIENT
  Sex: Female

DRUGS (3)
  1. TEKTURNA [Suspect]
     Dosage: 150 MG, QD; ORAL
     Route: 048
  2. ZETIA [Suspect]
  3. NORVASC [Suspect]

REACTIONS (4)
  - FEELING COLD [None]
  - MALAISE [None]
  - PRURITUS [None]
  - UPPER RESPIRATORY TRACT INFECTION [None]
